FAERS Safety Report 8516715-X (Version None)
Quarter: 2012Q3

REPORT INFORMATION
  Report Type: 
  Country: None (occurrence: None)
  Receive Date: 20120718
  Receipt Date: 20120716
  Transmission Date: 20120928
  Serious: Yes (Other)
  Sender: FDA-Public Use
  Company Number: US-BAYER-2012-070984

PATIENT
  Sex: Female

DRUGS (2)
  1. YASMIN [Suspect]
     Indication: CONTRACEPTION
  2. YAZ [Suspect]
     Indication: CONTRACEPTION

REACTIONS (4)
  - PULMONARY EMBOLISM [None]
  - PAIN [None]
  - INJURY [None]
  - FEAR [None]
